FAERS Safety Report 7767451 (Version 4)
Quarter: 2014Q2

REPORT INFORMATION
  Report Type: Spontaneous
  Country: US (occurrence: US)
  Receive Date: 20110120
  Receipt Date: 20140403
  Transmission Date: 20141212
  Serious: Yes (Hospitalization, Other)
  Sender: FDA-Public Use
  Company Number: US-JNJFOC-20100801486

PATIENT
  Age: 51 Year
  Sex: Female

DRUGS (1)
  1. LEVAQUIN [Suspect]
     Indication: INFECTION PROPHYLAXIS
     Route: 048
     Dates: start: 20010101, end: 20031231

REACTIONS (7)
  - Rotator cuff syndrome [Unknown]
  - Synovitis [Unknown]
  - Tendon rupture [Unknown]
  - Tenosynovitis stenosans [Unknown]
  - Rotator cuff syndrome [Unknown]
  - Synovitis [Unknown]
  - Tendon disorder [Unknown]
